FAERS Safety Report 4999131-7 (Version None)
Quarter: 2006Q2

REPORT INFORMATION
  Report Type: 
  Country: None (occurrence: None)
  Receive Date: 20060509
  Receipt Date: 20060420
  Transmission Date: 20061013
  Serious: Yes (Other)
  Sender: FDA-Public Use
  Company Number: US200604004009

PATIENT
  Sex: Female

DRUGS (3)
  1. CYMBALTA [Suspect]
     Indication: DEPRESSION
     Dosage: 90 MG
     Dates: start: 20060201
  2. TOPAMAX /AUS/ (TOPIRAMATE) [Concomitant]
  3. VITAMINS [Concomitant]

REACTIONS (5)
  - BLOOD GLUCOSE DECREASED [None]
  - HEAD INJURY [None]
  - IMPAIRED DRIVING ABILITY [None]
  - ROAD TRAFFIC ACCIDENT [None]
  - SOMNOLENCE [None]
